FAERS Safety Report 11637830 (Version 8)
Quarter: 2016Q1

REPORT INFORMATION
  Report Type: Spontaneous
  Country: US (occurrence: US)
  Receive Date: 20151016
  Receipt Date: 20160127
  Transmission Date: 20160525
  Serious: Yes (Hospitalization)
  Sender: FDA-Public Use
  Company Number: US-UNITED THERAPEUTICS-UNT-2015-012516

PATIENT
  Age: 1 Year
  Sex: Male
  Weight: 7.71 kg

DRUGS (6)
  1. TRACLEER [Concomitant]
     Active Substance: BOSENTAN
     Indication: PRODUCT USED FOR UNKNOWN INDICATION
  2. REMODULIN [Suspect]
     Active Substance: TREPROSTINIL
     Indication: PULMONARY HYPERTENSION
     Dosage: 0.059 ?G/KG/MIN, CONTINUING
     Route: 058
     Dates: start: 20151002
  3. REMODULIN [Suspect]
     Active Substance: TREPROSTINIL
     Dosage: 0.059 ?G/KG, CONTINUING
     Route: 058
  4. REVATIO [Concomitant]
     Active Substance: SILDENAFIL CITRATE
     Indication: PRODUCT USED FOR UNKNOWN INDICATION
  5. REMODULIN [Suspect]
     Active Substance: TREPROSTINIL
     Dosage: 0.022 ?G/KG, CONTINUING
     Route: 058
  6. REMODULIN [Suspect]
     Active Substance: TREPROSTINIL
     Dosage: 0.059 ?G/KG, CONTINUING
     Route: 058

REACTIONS (15)
  - Infusion site rash [Unknown]
  - Gastroenteritis viral [Unknown]
  - Device breakage [Unknown]
  - Infusion site haemorrhage [Recovered/Resolved]
  - Infusion site erythema [Unknown]
  - Dyspnoea [Recovered/Resolved]
  - Limb injury [Unknown]
  - Weight decreased [Unknown]
  - Respiratory tract infection [Unknown]
  - Viral infection [Not Recovered/Not Resolved]
  - Device issue [Unknown]
  - Dehydration [Unknown]
  - Infusion site discharge [Unknown]
  - Oxygen consumption increased [Not Recovered/Not Resolved]
  - Infusion site pain [Recovered/Resolved]

NARRATIVE: CASE EVENT DATE: 2015
